FAERS Safety Report 18036647 (Version 1)
Quarter: 2020Q3

REPORT INFORMATION
  Report Type: Spontaneous
  Country: BR (occurrence: BR)
  Receive Date: 20200717
  Receipt Date: 20200717
  Transmission Date: 20201103
  Serious: Yes (Other)
  Sender: FDA-Public Use
  Company Number: NVSC2020BR199529

PATIENT
  Sex: Female

DRUGS (2)
  1. RITALINA LA [Suspect]
     Active Substance: METHYLPHENIDATE HYDROCHLORIDE
     Dosage: 20 MG, QD
     Route: 065
     Dates: start: 202006
  2. RITALINA LA [Suspect]
     Active Substance: METHYLPHENIDATE HYDROCHLORIDE
     Indication: ATTENTION DEFICIT HYPERACTIVITY DISORDER
     Dosage: 10 MG, QD
     Route: 065
     Dates: start: 2018, end: 202006

REACTIONS (10)
  - Mania [Not Recovered/Not Resolved]
  - Drug ineffective [Not Recovered/Not Resolved]
  - Disturbance in attention [Not Recovered/Not Resolved]
  - Fatigue [Not Recovered/Not Resolved]
  - Weight increased [Recovered/Resolved]
  - Decreased appetite [Not Recovered/Not Resolved]
  - Wrong technique in product usage process [Recovered/Resolved]
  - Intentional self-injury [Not Recovered/Not Resolved]
  - Irritability [Not Recovered/Not Resolved]
  - Wrong technique in product usage process [Recovered/Resolved]

NARRATIVE: CASE EVENT DATE: 2018
